FAERS Safety Report 10171107 (Version 1)
Quarter: 2014Q2

REPORT INFORMATION
  Report Type: Spontaneous
  Country: BR (occurrence: BR)
  Receive Date: 20140514
  Receipt Date: 20140514
  Transmission Date: 20141212
  Serious: Yes (Other)
  Sender: FDA-Public Use
  Company Number: BR-JNJFOC-20140505303

PATIENT
  Age: 41 Year
  Sex: Female

DRUGS (1)
  1. TYLEX [Suspect]
     Indication: PAIN
     Route: 065

REACTIONS (4)
  - Dengue fever [Not Recovered/Not Resolved]
  - Headache [Not Recovered/Not Resolved]
  - Eye pain [Not Recovered/Not Resolved]
  - Pain [Not Recovered/Not Resolved]
